FAERS Safety Report 8904676 (Version 1)
Quarter: 2012Q4

REPORT INFORMATION
  Report Type: 
  Country: CA (occurrence: CA)
  Receive Date: 20121113
  Receipt Date: 20121113
  Transmission Date: 20130627
  Serious: Yes (Other)
  Sender: FDA-Public Use
  Company Number: PHHY2012CA102896

PATIENT
  Sex: Female
  Weight: 64.85 kg

DRUGS (10)
  1. GILENYA [Suspect]
     Indication: RELAPSING-REMITTING MULTIPLE SCLEROSIS
     Dosage: 0.5 mg, QD
     Route: 048
     Dates: start: 201109, end: 201201
  2. GILENYA [Suspect]
     Dosage: 0.5 mg, QD
     Route: 048
     Dates: start: 20120216, end: 20120616
  3. AMITRIPTYLINE [Concomitant]
     Dosage: 20 mg, UNK
  4. ATIVAN [Concomitant]
  5. OXYBUTYN [Concomitant]
  6. CODEINE [Concomitant]
  7. MORPHINE [Concomitant]
  8. DEMEROL [Concomitant]
  9. LORAZEPAM [Concomitant]
  10. DITROPAN [Concomitant]
     Dosage: 5 mg, UNK

REACTIONS (4)
  - Weight increased [Not Recovered/Not Resolved]
  - Oral mucosal blistering [Unknown]
  - Lip blister [Unknown]
  - Feeling abnormal [Unknown]
